FAERS Safety Report 5283295-4 (Version None)
Quarter: 2007Q1

REPORT INFORMATION
  Report Type: 
  Country: None (occurrence: None)
  Receive Date: 20070328
  Receipt Date: 20070328
  Transmission Date: 20070707
  Serious: Yes (Other)
  Sender: FDA-Public Use
  Company Number: None

PATIENT
  Age: 28 Year
  Sex: Male
  Weight: 60 kg

DRUGS (5)
  1. PROPOFOL [Suspect]
     Indication: SEDATION
     Dosage: 25 TO 125 UG/1G/MIN
     Dates: start: 20070220
  2. PROPOFOL [Suspect]
  3. CLONIDINE [Concomitant]
  4. SEROQUEL [Concomitant]
  5. TEGRETOL [Concomitant]

REACTIONS (1)
  - DRUG INEFFECTIVE [None]
